FAERS Safety Report 9903775 (Version 1)
Quarter: 2014Q1

REPORT INFORMATION
  Report Type: Report from Study
  Country: US (occurrence: US)
  Receive Date: 20140218
  Receipt Date: 20140218
  Transmission Date: 20141002
  Serious: Yes (Other)
  Sender: FDA-Public Use
  Company Number: US-ROCHE-1346642

PATIENT
  Sex: Female

DRUGS (4)
  1. AVASTIN [Suspect]
     Indication: AGE-RELATED MACULAR DEGENERATION
     Route: 065
  2. TIMOLOL [Concomitant]
     Dosage: QHS OU
     Route: 047
  3. TRAVATAN [Concomitant]
     Dosage: QAM OU
     Route: 065
  4. NEVANAC [Concomitant]
     Dosage: BID
     Route: 065
     Dates: end: 201106

REACTIONS (8)
  - Macular oedema [Unknown]
  - Vision blurred [Unknown]
  - Open angle glaucoma [Unknown]
  - Retinal degeneration [Unknown]
  - Retinal degeneration [Unknown]
  - Retinal disorder [Unknown]
  - Off label use [Unknown]
  - Diabetes mellitus [Unknown]
